FAERS Safety Report 4364015-4 (Version None)
Quarter: 2004Q2

REPORT INFORMATION
  Report Type: 
  Country: None (occurrence: None)
  Receive Date: 20040525
  Receipt Date: 20040519
  Transmission Date: 20050107
  Serious: Yes (Other)
  Sender: FDA-Public Use
  Company Number: 200415325GDDC

PATIENT
  Age: 39 Year
  Sex: Female

DRUGS (6)
  1. ARAVA [Suspect]
     Indication: RHEUMATOID ARTHRITIS
     Route: 048
     Dates: start: 20040101
  2. CELECOXIB [Concomitant]
     Indication: RHEUMATOID ARTHRITIS
     Route: 048
  3. COD LIVER OIL [Concomitant]
     Dosage: DOSE: UNK
  4. EVENING PRIMROSE OIL [Concomitant]
     Dosage: DOSE: UNK
  5. CO-PROXAMOL [Concomitant]
     Dosage: DOSE: UNK
  6. TRAMADOL HCL [Concomitant]
     Dosage: DOSE: UNK

REACTIONS (4)
  - DRY SKIN [None]
  - IMPETIGO [None]
  - MOUTH ULCERATION [None]
  - SWELLING FACE [None]
